FAERS Safety Report 6057342-6 (Version None)
Quarter: 2009Q1

REPORT INFORMATION
  Report Type: 
  Country: None (occurrence: None)
  Receive Date: 20090129
  Receipt Date: 20081111
  Transmission Date: 20090719
  Serious: No
  Sender: FDA-Public Use
  Company Number: A0755790A

PATIENT
  Age: 56 Year
  Sex: Male

DRUGS (5)
  1. WELLBUTRIN [Suspect]
     Indication: DEPRESSION
     Dosage: 300MG PER DAY
     Route: 048
     Dates: start: 20081022
  2. SYNTHROID [Concomitant]
  3. EYE MEDICATION [Concomitant]
  4. FIORINAL [Concomitant]
  5. FIORICET [Concomitant]

REACTIONS (4)
  - CONFUSIONAL STATE [None]
  - MEMORY IMPAIRMENT [None]
  - NAUSEA [None]
  - OVERDOSE [None]
